FAERS Safety Report 9648389 (Version 1)
Quarter: 2013Q4

REPORT INFORMATION
  Report Type: Spontaneous
  Country: US (occurrence: None)
  Receive Date: 20131025
  Receipt Date: 20131025
  Transmission Date: 20140711
  Serious: Yes (Other)
  Sender: FDA-Public Use
  Company Number: None

PATIENT
  Age: 58 Year
  Sex: Female
  Weight: 78.02 kg

DRUGS (2)
  1. CYMBALTA [Suspect]
     Indication: MUSCULOSKELETAL PAIN
     Dosage: 1 CAPSULE; ONCE DAILY; TAKEN BY MOUTH
     Route: 048
     Dates: start: 20131023, end: 20131023
  2. PATADAY [Suspect]
     Indication: MULTIPLE ALLERGIES
     Dosage: 1 DROP; ONCE DAILY; INTO THE EYE
     Route: 047
     Dates: start: 20130908, end: 20131016

REACTIONS (6)
  - Neck pain [None]
  - Abdominal pain upper [None]
  - Chest pain [None]
  - Burning sensation [None]
  - Diarrhoea [None]
  - Malaise [None]
